FAERS Safety Report 14893799 (Version 1)
Quarter: 2018Q2

REPORT INFORMATION
  Report Type: Spontaneous
  Country: CN (occurrence: CN)
  Receive Date: 20180514
  Receipt Date: 20180514
  Transmission Date: 20180711
  Serious: Yes (Life-Threatening)
  Sender: FDA-Public Use
  Company Number: CN-GE HEALTHCARE LIFE SCIENCES-2018CSU001836

PATIENT

DRUGS (1)
  1. OMNIPAQUE [Suspect]
     Active Substance: IOHEXOL
     Indication: PRODUCT USED FOR UNKNOWN INDICATION
     Dosage: 100 ML, SINGLE
     Route: 042
     Dates: start: 20180427, end: 20180427

REACTIONS (8)
  - Vomiting [Unknown]
  - Cyanosis [Unknown]
  - Depressed mood [Unknown]
  - Headache [Unknown]
  - Dizziness [Unknown]
  - Pyrexia [Recovering/Resolving]
  - Fatigue [Unknown]
  - Chills [Recovering/Resolving]

NARRATIVE: CASE EVENT DATE: 20180427
